FAERS Safety Report 9699248 (Version 1)
Quarter: 2013Q4

REPORT INFORMATION
  Report Type: Spontaneous
  Country: US (occurrence: US)
  Receive Date: 20131120
  Receipt Date: 20131120
  Transmission Date: 20140711
  Serious: No
  Sender: FDA-Public Use
  Company Number: US-TEVA-446030USA

PATIENT
  Age: 7 Month
  Sex: Female
  Weight: 69.92 kg

DRUGS (2)
  1. PLAN B ONE-STEP [Suspect]
     Indication: POST COITAL CONTRACEPTION
     Dosage: 1.5 MILLIGRAM DAILY;
     Route: 048
     Dates: start: 20131005, end: 20131005
  2. MULTIVITAMIN [Concomitant]
     Indication: ROUTINE HEALTH MAINTENANCE

REACTIONS (5)
  - Hyperaesthesia [Not Recovered/Not Resolved]
  - Breast tenderness [Not Recovered/Not Resolved]
  - Menstruation irregular [Not Recovered/Not Resolved]
  - Dysmenorrhoea [Recovered/Resolved]
  - Nausea [Recovered/Resolved]
